FAERS Safety Report 6609614-1 (Version None)
Quarter: 2010Q1

REPORT INFORMATION
  Report Type: 
  Country: None (occurrence: None)
  Receive Date: 20100212
  Receipt Date: 20091124
  Transmission Date: 20100710
  Serious: No
  Sender: FDA-Public Use
  Company Number: 1000010372

PATIENT
  Sex: Female

DRUGS (1)
  1. SAVELLA [Suspect]
     Dosage: 25 MG (12.5 MG, 2 IN 1 D), ORAL
     Route: 048

REACTIONS (5)
  - CONSTIPATION [None]
  - DRY MOUTH [None]
  - HOT FLUSH [None]
  - IRRITABILITY [None]
  - OROPHARYNGEAL PAIN [None]
